FAERS Safety Report 7352711-6 (Version None)
Quarter: 2011Q1

REPORT INFORMATION
  Report Type: 
  Country: None (occurrence: None)
  Receive Date: 20110302
  Receipt Date: 20101011
  Transmission Date: 20110831
  Serious: Yes (Other)
  Sender: FDA-Public Use
  Company Number: 316320

PATIENT
  Age: 58 Year
  Sex: Female
  Weight: 67.6 kg

DRUGS (1)
  1. NOVOLIN 70/30 [Suspect]
     Indication: TYPE 2 DIABETES MELLITUS
     Dosage: SUBCUTANEOUS
     Route: 058
     Dates: start: 19920101

REACTIONS (1)
  - HYPOGLYCAEMIC UNCONSCIOUSNESS [None]
